FAERS Safety Report 4509799-7 (Version None)
Quarter: 2004Q4

REPORT INFORMATION
  Report Type: 
  Country: None (occurrence: None)
  Receive Date: 20041124
  Receipt Date: 20040730
  Transmission Date: 20050328
  Serious: No
  Sender: FDA-Public Use
  Company Number: US-BRISTOL-MYERS SQUIBB COMPANY-12656831

PATIENT
  Age: 73 Year
  Sex: Female
  Weight: 71 kg

DRUGS (7)
  1. AVALIDE [Suspect]
     Indication: HYPERTENSION
     Dosage: DOSAGE: 300MG/12.5MG DAILY. INCREASED FROM 150MG/12.5MG DAILY FOR 2 WEEKS
     Route: 048
  2. CARDURA [Concomitant]
     Indication: BLOOD PRESSURE
  3. SECTRAL [Concomitant]
     Indication: BLOOD PRESSURE
  4. SYNTHROID [Concomitant]
  5. VIOXX [Concomitant]
  6. XANAX [Concomitant]
  7. PROVENTIL [Concomitant]

REACTIONS (2)
  - ASTHENIA [None]
  - DIZZINESS [None]
